FAERS Safety Report 18302206 (Version 1)
Quarter: 2020Q3

REPORT INFORMATION
  Report Type: Spontaneous
  Country: PL (occurrence: PL)
  Receive Date: 20200923
  Receipt Date: 20200923
  Transmission Date: 20201103
  Serious: Yes (Hospitalization, Other)
  Sender: FDA-Public Use
  Company Number: PL-PERRIGO-20PL013212

PATIENT
  Age: 16 Year
  Sex: Male

DRUGS (6)
  1. TROXERUTIN [Suspect]
     Active Substance: TROXERUTIN
     Dosage: UNK
  2. DEXAMETHASONE. [Suspect]
     Active Substance: DEXAMETHASONE
     Dosage: UNK
     Route: 042
  3. HEPARIN [Suspect]
     Active Substance: HEPARIN SODIUM
     Dosage: UNK
     Route: 042
  4. CEFTRIAXONE DISODIUM [Suspect]
     Active Substance: CEFTRIAXONE
     Dosage: UNK
  5. DICLOFENAC [Suspect]
     Active Substance: DICLOFENAC
     Indication: PRODUCT USED FOR UNKNOWN INDICATION
     Dosage: UNK
     Route: 065
  6. VANCOMYCIN [Suspect]
     Active Substance: VANCOMYCIN
     Dosage: UNK
     Route: 042

REACTIONS (3)
  - Optic atrophy [Not Recovered/Not Resolved]
  - Visual acuity reduced [Not Recovered/Not Resolved]
  - Visual impairment [Not Recovered/Not Resolved]
